FAERS Safety Report 19608434 (Version 1)
Quarter: 2021Q3

REPORT INFORMATION
  Report Type: Spontaneous
  Country: CA (occurrence: CA)
  Receive Date: 20210723
  Receipt Date: 20210723
  Transmission Date: 20211014
  Serious: Yes (Disabling)
  Sender: FDA-Public Use
  Company Number: None

PATIENT
  Age: 18 Year
  Sex: Male
  Weight: 77.4 kg

DRUGS (2)
  1. KIRKLAND SIGNATURE MINOXIDIL [Suspect]
     Active Substance: MINOXIDIL
     Indication: ANDROGENETIC ALOPECIA
     Dosage: ?          QUANTITY:1 DROP(S);?
     Route: 061
     Dates: start: 20210402, end: 20210504
  2. MAGNESIUM AND IRON [Concomitant]

REACTIONS (7)
  - Libido decreased [None]
  - Depression [None]
  - Dyspnoea [None]
  - Anxiety [None]
  - Tachycardia [None]
  - Alopecia [None]
  - Penile discomfort [None]

NARRATIVE: CASE EVENT DATE: 20210504
